FAERS Safety Report 23648289 (Version 1)
Quarter: 2024Q1

REPORT INFORMATION
  Report Type: Spontaneous
  Country: CA (occurrence: CA)
  Receive Date: 20240319
  Receipt Date: 20240319
  Transmission Date: 20240409
  Serious: Yes (Other)
  Sender: FDA-Public Use
  Company Number: CA-FreseniusKabi-FK202404019

PATIENT
  Age: 46 Year
  Sex: Female
  Weight: 65 kg

DRUGS (2)
  1. PROPOFOL [Suspect]
     Active Substance: PROPOFOL
     Indication: Colonoscopy
     Dosage: FREQUENCY: ONCE?DOSAGE FORM: NOT SPECIFIED
     Route: 065
  2. COVID VACCINE [Concomitant]
     Indication: Product used for unknown indication

REACTIONS (2)
  - Sensory disturbance [Not Recovered/Not Resolved]
  - Neuralgia [Not Recovered/Not Resolved]
